FAERS Safety Report 5947090-2 (Version None)
Quarter: 2008Q4

REPORT INFORMATION
  Report Type: 
  Country: None (occurrence: None)
  Receive Date: 20081110
  Receipt Date: 20081104
  Transmission Date: 20090506
  Serious: Yes (Other)
  Sender: FDA-Public Use
  Company Number: IE-ASTRAZENECA-2008GB01232

PATIENT
  Age: 667 Month
  Sex: Female
  Weight: 65 kg

DRUGS (6)
  1. NEXIUM [Suspect]
     Indication: DUODENAL ULCER
     Route: 048
     Dates: start: 20060601, end: 20070901
  2. PLAQUENIL [Concomitant]
  3. FOLIC ACID [Concomitant]
     Indication: ANAEMIA
     Route: 048
  4. FE SUPPLEMENTS [Concomitant]
     Route: 048
  5. CALCICHEW D3 [Concomitant]
     Route: 048
  6. HYDROCORTISONE CREAM [Concomitant]

REACTIONS (1)
  - CUTANEOUS LUPUS ERYTHEMATOSUS [None]
